FAERS Safety Report 14897831 (Version 1)
Quarter: 2018Q2

REPORT INFORMATION
  Report Type: Spontaneous
  Country: US (occurrence: US)
  Receive Date: 20180427
  Receipt Date: 20180427
  Transmission Date: 20180711
  Serious: Yes (Hospitalization)
  Sender: FDA-Public Use
  Company Number: None

PATIENT
  Age: 69 Year
  Sex: Female
  Weight: 96.8 kg

DRUGS (3)
  1. ETOPOSIDE (VP-16) [Suspect]
     Active Substance: ETOPOSIDE
     Dates: end: 20180120
  2. CYTARABINE. [Suspect]
     Active Substance: CYTARABINE
     Dates: end: 20180120
  3. METHOTREXATE. [Suspect]
     Active Substance: METHOTREXATE
     Dates: end: 20180117

REACTIONS (1)
  - Neutrophil count decreased [None]

NARRATIVE: CASE EVENT DATE: 20180202
